FAERS Safety Report 22134315 (Version 1)
Quarter: 2023Q1

REPORT INFORMATION
  Report Type: Spontaneous
  Country: GB (occurrence: GB)
  Receive Date: 20230324
  Receipt Date: 20230324
  Transmission Date: 20230418
  Serious: Yes (Life-Threatening)
  Sender: FDA-Public Use
  Company Number: GB-MHRA-MED-202303131314535150-KZGCS

PATIENT
  Age: 22 Year
  Sex: Male
  Weight: 102 kg

DRUGS (1)
  1. CITALOPRAM HYDROBROMIDE [Suspect]
     Active Substance: CITALOPRAM HYDROBROMIDE
     Indication: Adverse drug reaction
     Dosage: 20 MILLIGRAM, ONCE A DAY
     Route: 065
     Dates: start: 20120602, end: 20220604

REACTIONS (3)
  - Genital hypoaesthesia [Not Recovered/Not Resolved]
  - Loss of libido [Not Recovered/Not Resolved]
  - Medication error [Unknown]

NARRATIVE: CASE EVENT DATE: 20120602
